FAERS Safety Report 11892088 (Version 1)
Quarter: 2016Q1

REPORT INFORMATION
  Report Type: Spontaneous
  Country: US (occurrence: None)
  Receive Date: 20160105
  Receipt Date: 20160105
  Transmission Date: 20160526
  Serious: Yes (Other)
  Sender: FDA-Public Use
  Company Number: None

PATIENT
  Age: 30 Year
  Sex: Male
  Weight: 77.11 kg

DRUGS (7)
  1. VENLAFAXINE ER [Concomitant]
     Active Substance: VENLAFAXINE HYDROCHLORIDE
  2. PHENYLEPHRINE [Concomitant]
     Active Substance: PHENYLEPHRINE\PHENYLEPHRINE HYDROCHLORIDE
  3. ACETAMINOPHEN. [Concomitant]
     Active Substance: ACETAMINOPHEN
  4. LIALDA [Concomitant]
     Active Substance: MESALAMINE
  5. SIMPONI [Suspect]
     Active Substance: GOLIMUMAB
     Indication: COLITIS ULCERATIVE
     Dosage: 1 AUTOINJECTIOR, ONCE PER MONTH, GIVEN INTO/UNDER THE SKIN
     Dates: start: 20150201, end: 20151130
  6. DAILY MULTIVITAMIN [Concomitant]
     Active Substance: VITAMINS
  7. SIMPONI [Concomitant]
     Active Substance: GOLIMUMAB

REACTIONS (8)
  - Nasal discharge discolouration [None]
  - Bronchitis [None]
  - Cough [None]
  - Condition aggravated [None]
  - Sinusitis [None]
  - Dysgeusia [None]
  - Oropharyngeal pain [None]
  - Upper-airway cough syndrome [None]

NARRATIVE: CASE EVENT DATE: 20160104
